FAERS Safety Report 12433369 (Version 3)
Quarter: 2020Q2

REPORT INFORMATION
  Report Type: Report from Study
  Country: US (occurrence: US)
  Receive Date: 20160603
  Receipt Date: 20200506
  Transmission Date: 20200713
  Serious: Yes (Other)
  Sender: FDA-Public Use
  Company Number: GXBR2016US001189

PATIENT
  Age: 15 Year
  Sex: Male
  Weight: 56.3 kg

DRUGS (8)
  1. KEPPRA [Concomitant]
     Active Substance: LEVETIRACETAM
     Indication: SEIZURE
  2. LAMICTAL [Concomitant]
     Active Substance: LAMOTRIGINE
     Indication: POLYGLANDULAR AUTOIMMUNE SYNDROME TYPE II
  3. TOPAMAX [Concomitant]
     Active Substance: TOPIRAMATE
     Indication: TEMPORAL LOBE EPILEPSY
     Dosage: UNK
     Route: 048
     Dates: start: 20130223
  4. MINOCYCLINE [Concomitant]
     Active Substance: MINOCYCLINE HYDROCHLORIDE
     Indication: PROPHYLAXIS
     Route: 048
  5. KEPPRA [Concomitant]
     Active Substance: LEVETIRACETAM
     Indication: TEMPORAL LOBE EPILEPSY
     Dosage: UNK
     Route: 048
     Dates: start: 20130123, end: 20161222
  6. ACCUTANE [Concomitant]
     Active Substance: ISOTRETINOIN
     Indication: ACNE
     Route: 048
  7. LAMICTAL [Concomitant]
     Active Substance: LAMOTRIGINE
     Indication: TEMPORAL LOBE EPILEPSY
     Dosage: UNK
     Route: 065
  8. SOMATROPIN (RHGH) LYOPHILIZED POWDER [Suspect]
     Active Substance: SOMATROPIN
     Indication: GROWTH HORMONE DEFICIENCY
     Dosage: 0.042 MG/KG, QD
     Route: 058
     Dates: start: 20131023

REACTIONS (5)
  - Accidental overdose [Recovered/Resolved]
  - Seizure [Recovered/Resolved]
  - Cerebral disorder [Recovered/Resolved with Sequelae]
  - Concomitant disease aggravated [Recovered/Resolved]
  - Incorrect dose administered [Recovered/Resolved]

NARRATIVE: CASE EVENT DATE: 20151201
